FAERS Safety Report 7723345-6 (Version None)
Quarter: 2011Q3

REPORT INFORMATION
  Report Type: 
  Country: None (occurrence: None)
  Receive Date: 20110901
  Receipt Date: 20110901
  Transmission Date: 20111222
  Serious: No
  Sender: FDA-Public Use
  Company Number: None

PATIENT
  Sex: Male
  Weight: 69.399 kg

DRUGS (2)
  1. ACTOS [Suspect]
     Indication: HYPERGLYCAEMIA
     Dosage: 30MG
     Route: 048
     Dates: start: 20110721, end: 20110828
  2. ACTOS [Suspect]
     Indication: TYPE 2 DIABETES MELLITUS
     Dosage: 30MG
     Route: 048
     Dates: start: 20110721, end: 20110828

REACTIONS (4)
  - NAUSEA [None]
  - NYSTAGMUS [None]
  - BALANCE DISORDER [None]
  - VOMITING [None]
